FAERS Safety Report 14094964 (Version 2)
Quarter: 2017Q4

REPORT INFORMATION
  Report Type: Spontaneous
  Country: US (occurrence: US)
  Receive Date: 20171016
  Receipt Date: 20171127
  Transmission Date: 20180321
  Serious: No
  Sender: FDA-Public Use
  Company Number: US-ASTRAZENECA-2017SF03987

PATIENT
  Sex: Male

DRUGS (1)
  1. SYMBICORT [Suspect]
     Active Substance: BUDESONIDE\FORMOTEROL FUMARATE DIHYDRATE
     Dosage: 160/4.5, 2 PUFFS TWICE A DAY
     Route: 055

REACTIONS (4)
  - Lung disorder [Unknown]
  - Drug dose omission [Unknown]
  - Product quality issue [Unknown]
  - Intentional product misuse [Unknown]
